FAERS Safety Report 6006298-0 (Version None)
Quarter: 2008Q4

REPORT INFORMATION
  Report Type: 
  Country: None (occurrence: None)
  Receive Date: 20081217
  Receipt Date: 20071031
  Transmission Date: 20090506
  Serious: Yes (Other)
  Sender: FDA-Public Use
  Company Number: US-BAXTER-2008BH010413

PATIENT
  Sex: Female

DRUGS (6)
  1. GAMMAGARD LIQUID [Suspect]
     Indication: HYPOGAMMAGLOBULINAEMIA
     Route: 042
  2. GAMMAGARD LIQUID [Suspect]
     Indication: AUTOIMMUNE DISORDER
     Route: 042
  3. GAMUNEX [Suspect]
     Indication: HYPOGAMMAGLOBULINAEMIA
     Route: 042
  4. GAMUNEX [Suspect]
     Indication: AUTOIMMUNE DISORDER
     Route: 042
  5. ACETAMINOPHEN [Concomitant]
     Indication: PREMEDICATION
     Route: 065
  6. DIPHENHYDRAMINE HCL [Concomitant]
     Indication: PREMEDICATION
     Route: 065

REACTIONS (2)
  - ANAPHYLACTOID REACTION [None]
  - DRUG INTOLERANCE [None]
